FAERS Safety Report 8237616-0 (Version None)
Quarter: 2012Q1

REPORT INFORMATION
  Report Type: 
  Country: None (occurrence: None)
  Receive Date: 20120323
  Receipt Date: 20120316
  Transmission Date: 20120608
  Serious: Yes (Disabling)
  Sender: FDA-Public Use
  Company Number: 2012SP014392

PATIENT
  Age: 57 Year

DRUGS (2)
  1. REMERON [Suspect]
     Indication: PRODUCT USED FOR UNKNOWN INDICATION
     Dosage: 1 DF;HS;PO
     Route: 048
  2. EFFEXOR XR [Suspect]
     Indication: PRODUCT USED FOR UNKNOWN INDICATION
     Dosage: 1 DF;HS;PO
     Route: 048
     Dates: start: 20120131

REACTIONS (1)
  - IMPAIRED WORK ABILITY [None]
